FAERS Safety Report 16112499 (Version 1)
Quarter: 2019Q1

REPORT INFORMATION
  Report Type: Spontaneous
  Country: US (occurrence: US)
  Receive Date: 20190325
  Receipt Date: 20190325
  Transmission Date: 20190418
  Serious: No
  Sender: FDA-Public Use
  Company Number: US-PFIZER INC-2016408099

PATIENT
  Age: 86 Year
  Sex: Female
  Weight: 70.3 kg

DRUGS (2)
  1. PREMARIN [Suspect]
     Active Substance: ESTROGENS, CONJUGATED
     Indication: OESTROGEN THERAPY
     Dosage: 1.5 GRAMS 3 TIMES A WEEK
     Route: 067
  2. PREMARIN [Suspect]
     Active Substance: ESTROGENS, CONJUGATED
     Dosage: INSERT 1.59 INTRAVAGINAL WITH APPLICATOR TWICE WEEK
     Route: 067

REACTIONS (4)
  - Therapeutic response unexpected [Unknown]
  - Urinary incontinence [Unknown]
  - Incorrect dose administered [Unknown]
  - Product use issue [Unknown]
